FAERS Safety Report 7339690-2 (Version None)
Quarter: 2011Q1

REPORT INFORMATION
  Report Type: 
  Country: None (occurrence: None)
  Receive Date: 20110303
  Receipt Date: 20110303
  Transmission Date: 20110831
  Serious: Yes (Hospitalization)
  Sender: FDA-Public Use
  Company Number: None

PATIENT
  Sex: Female
  Weight: 81.6475 kg

DRUGS (1)
  1. AVELOX [Suspect]
     Indication: BRONCHITIS
     Dosage: 1 PER DAY

REACTIONS (7)
  - CHEST PAIN [None]
  - OEDEMA MOUTH [None]
  - ABDOMINAL PAIN UPPER [None]
  - HYPERTENSION [None]
  - PRURITUS [None]
  - EAR PAIN [None]
  - SWOLLEN TONGUE [None]
